FAERS Safety Report 5262004-9 (Version None)
Quarter: 2007Q1

REPORT INFORMATION
  Report Type: 
  Country: None (occurrence: None)
  Receive Date: 20070308
  Receipt Date: 20070220
  Transmission Date: 20070707
  Serious: Yes (Life-Threatening, Hospitalization)
  Sender: FDA-Public Use
  Company Number: 000554

PATIENT
  Age: 49 Year
  Sex: Male
  Weight: 108.8633 kg

DRUGS (5)
  1. ZEVALIN [Suspect]
     Indication: NON-HODGKIN'S LYMPHOMA
     Dosage: 0.4 MCI/KG;1X;IV
     Route: 042
     Dates: start: 20030206, end: 20030206
  2. HYDROCORTISONE [Concomitant]
  3. CHLORPHENIRAMINE MALEATE [Concomitant]
  4. FUROSEMIDE [Concomitant]
  5. RITUXIMAB [Concomitant]

REACTIONS (4)
  - LEUKOPENIA [None]
  - LYMPHOPENIA [None]
  - NEUTROPENIA [None]
  - THROMBOCYTOPENIA [None]
